FAERS Safety Report 6759113-1 (Version None)
Quarter: 2010Q2

REPORT INFORMATION
  Report Type: 
  Country: None (occurrence: None)
  Receive Date: 20100607
  Receipt Date: 20100528
  Transmission Date: 20101027
  Serious: Yes (Death, Life-Threatening, Hospitalization)
  Sender: FDA-Public Use
  Company Number: FR-WYE-G00690907

PATIENT
  Sex: Male

DRUGS (25)
  1. TAZOCILLINE [Suspect]
     Indication: RESPIRATORY TRACT INFECTION BACTERIAL
     Dosage: UNKNOWN
     Route: 042
     Dates: start: 20070327
  2. TAZOCILLINE [Suspect]
     Indication: ESCHERICHIA INFECTION
  3. TAZOCILLINE [Suspect]
     Indication: ENTEROCOCCAL INFECTION
  4. VANCOMYCIN HYDROCHLORIDE [Suspect]
     Indication: RESPIRATORY TRACT INFECTION BACTERIAL
     Dosage: UNKNOWN
     Route: 042
     Dates: start: 20070327, end: 20070403
  5. VANCOMYCIN HYDROCHLORIDE [Suspect]
     Indication: ESCHERICHIA INFECTION
  6. VANCOMYCIN HYDROCHLORIDE [Suspect]
     Indication: ENTEROCOCCAL INFECTION
  7. AMIKIN [Suspect]
     Indication: RESPIRATORY TRACT INFECTION BACTERIAL
     Dosage: UNKNOWN
     Route: 042
     Dates: start: 20070323, end: 20070409
  8. AMIKIN [Suspect]
     Indication: ESCHERICHIA INFECTION
  9. AMIKIN [Suspect]
     Indication: ENTEROCOCCAL INFECTION
  10. ZYVOXID [Concomitant]
     Indication: RESPIRATORY TRACT INFECTION BACTERIAL
     Dosage: UNKNOWN
     Route: 042
     Dates: start: 20070403, end: 20070409
  11. ZYVOXID [Concomitant]
     Indication: ESCHERICHIA INFECTION
  12. ZYVOXID [Concomitant]
     Indication: ENTEROCOCCAL INFECTION
  13. HYPNOVEL [Concomitant]
     Dosage: UNKNOWN
  14. SUFENTA PRESERVATIVE FREE [Concomitant]
     Dosage: UNKNOWN
  15. NIMBEX [Concomitant]
     Dosage: UNKNOWN
  16. BUMEX [Concomitant]
     Dosage: UNKNOWN
  17. NOREPINEPHRINE [Concomitant]
     Dosage: UNKNOWN
  18. ERYTHROMYCIN [Concomitant]
     Dosage: UNKNOWN
  19. SURBRONC [Concomitant]
     Dosage: UNKNOWN
  20. MOPRAL [Concomitant]
     Dosage: UNKNOWN
  21. LOVENOX [Concomitant]
     Dosage: UNKNOWN
     Route: 042
     Dates: end: 20070417
  22. CALCIPARINE [Concomitant]
     Dosage: UNKNOWN
  23. CIFLOX [Suspect]
     Indication: RESPIRATORY TRACT INFECTION BACTERIAL
     Dosage: UNKNOWN
     Route: 042
     Dates: start: 20070401
  24. CIFLOX [Suspect]
     Indication: ENTEROCOCCAL INFECTION
  25. CIFLOX [Suspect]
     Indication: ESCHERICHIA INFECTION

REACTIONS (11)
  - BLOOD CREATININE INCREASED [None]
  - CYTOLYTIC HEPATITIS [None]
  - DEATH [None]
  - GAMMA-GLUTAMYLTRANSFERASE INCREASED [None]
  - HAEMATURIA [None]
  - HISTIOCYTOSIS HAEMATOPHAGIC [None]
  - MONONUCLEOSIS SYNDROME [None]
  - PANCYTOPENIA [None]
  - RECTAL HAEMORRHAGE [None]
  - RENAL FAILURE ACUTE [None]
  - TOXIC SKIN ERUPTION [None]
